FAERS Safety Report 12694978 (Version 1)
Quarter: 2016Q3

REPORT INFORMATION
  Report Type: Report from Study
  Country: US (occurrence: US)
  Receive Date: 20160829
  Receipt Date: 20160829
  Transmission Date: 20161109
  Serious: Yes (Death, Other)
  Sender: FDA-Public Use
  Company Number: US-AMGEN-USASL2016112896

PATIENT
  Sex: Female

DRUGS (3)
  1. BLINCYTO [Suspect]
     Active Substance: BLINATUMOMAB
     Dosage: 65 MG, UNK
     Route: 065
     Dates: start: 20150714
  2. BLINCYTO [Suspect]
     Active Substance: BLINATUMOMAB
     Dosage: 65 MG, UNK
     Route: 065
     Dates: start: 20150709
  3. BLINCYTO [Suspect]
     Active Substance: BLINATUMOMAB
     Indication: ACUTE LYMPHOCYTIC LEUKAEMIA
     Dosage: 65 MG, UNK
     Route: 065
     Dates: start: 201507

REACTIONS (1)
  - Death [Fatal]

NARRATIVE: CASE EVENT DATE: 20150720
